FAERS Safety Report 8006603-X (Version None)
Quarter: 2011Q4

REPORT INFORMATION
  Report Type: 
  Country: None (occurrence: None)
  Receive Date: 20111227
  Receipt Date: 20110802
  Transmission Date: 20120403
  Serious: No
  Sender: FDA-Public Use
  Company Number: US-BAYER-2011-068237

PATIENT
  Age: 61 Year
  Sex: Male

DRUGS (5)
  1. ATENOLOL [Concomitant]
  2. ASPIRIN [Concomitant]
  3. LIPITOR [Concomitant]
  4. ALTACE [Concomitant]
  5. AVELOX [Suspect]
     Indication: EAR INFECTION
     Dosage: 400 MG, QD
     Route: 048
     Dates: start: 20110801

REACTIONS (1)
  - NERVOUSNESS [None]
